FAERS Safety Report 19753349 (Version 1)
Quarter: 2021Q3

REPORT INFORMATION
  Report Type: Other
  Country: BG (occurrence: BG)
  Receive Date: 20210826
  Receipt Date: 20210826
  Transmission Date: 20211014
  Serious: Yes (Hospitalization)
  Sender: FDA-Public Use
  Company Number: BG-TAIHO ONCOLOGY  INC-IM-2021-00504

PATIENT
  Age: 72 Year
  Sex: Female

DRUGS (2)
  1. LONSURF [Suspect]
     Active Substance: TIPIRACIL HYDROCHLORIDE\TRIFLURIDINE
     Indication: RECTAL CANCER
     Dosage: 1 DF, TID
     Route: 048
     Dates: start: 20190611, end: 20200625
  2. LONSURF [Suspect]
     Active Substance: TIPIRACIL HYDROCHLORIDE\TRIFLURIDINE
     Dosage: 2 DF, BID
     Route: 048
     Dates: start: 20200911, end: 20201015

REACTIONS (3)
  - Pancytopenia [Recovered/Resolved]
  - Gastrointestinal toxicity [Recovered/Resolved]
  - Anaemia [Recovered/Resolved]

NARRATIVE: CASE EVENT DATE: 20190813
